FAERS Safety Report 5139719-6 (Version None)
Quarter: 2006Q4

REPORT INFORMATION
  Report Type: 
  Country: None (occurrence: None)
  Receive Date: 20061024
  Receipt Date: 20061009
  Transmission Date: 20070319
  Serious: Yes (Death)
  Sender: FDA-Public Use
  Company Number: 2006RR-04060

PATIENT
  Age: 90 Year
  Sex: 0

DRUGS (1)
  1. CEPHALEXIN [Suspect]
     Dosage: 250 MG, ORAL
     Route: 048
     Dates: start: 20060609

REACTIONS (1)
  - CLOSTRIDIAL INFECTION [None]
